FAERS Safety Report 8030014-4 (Version None)
Quarter: 2012Q1

REPORT INFORMATION
  Report Type: 
  Country: None (occurrence: None)
  Receive Date: 20120106
  Receipt Date: 20120106
  Transmission Date: 20120608
  Serious: Yes (Other)
  Sender: FDA-Public Use
  Company Number: None

PATIENT
  Age: 78 Year
  Sex: Male

DRUGS (6)
  1. AMITRIPTYLINE HCL [Concomitant]
  2. MAGIC MOUTHWASH (STOMATOLOGICALS, MOUTH PREPARATIONS) [Concomitant]
  3. OMEPRAZOLE [Concomitant]
  4. DIVALPROEX (VALPROATE SEMISODIUM) [Concomitant]
  5. TRAMADOL HCL [Concomitant]
  6. LISTERINE POCKETPAK COOLMINT (ORAL CARE PRODUCTS) FILMSTRIP [Suspect]
     Indication: BREATH ODOUR
     Dosage: IN 1 AS NECESSARY, ORAL
     Route: 048
     Dates: end: 20111204

REACTIONS (5)
  - OROPHARYNGEAL PAIN [None]
  - APHAGIA [None]
  - ORAL PAIN [None]
  - NAUSEA [None]
  - TONGUE DISORDER [None]
